FAERS Safety Report 9509266 (Version 8)
Quarter: 2015Q1

REPORT INFORMATION
  Report Type: Spontaneous
  Country: GB (occurrence: GB)
  Receive Date: 20130909
  Receipt Date: 20150218
  Transmission Date: 20150721
  Serious: Yes (Hospitalization, Other)
  Sender: FDA-Public Use
  Company Number: GB-VERTEX PHARMACEUTICALS INC-2013-009369

PATIENT
  Age: 58 Year
  Sex: Male

DRUGS (17)
  1. INCIVO [Suspect]
     Active Substance: TELAPREVIR
     Indication: HEPATITIS C
     Dosage: 2250 MG, QD
     Route: 048
     Dates: start: 20130531, end: 20130805
  2. COPEGUS [Suspect]
     Active Substance: RIBAVIRIN
     Indication: HEPATITIS C
     Dosage: 1200 MG, QD
     Route: 048
     Dates: start: 20130503, end: 20130605
  3. COPEGUS [Suspect]
     Active Substance: RIBAVIRIN
     Dosage: 1000 MG, QD
     Route: 048
     Dates: start: 20130605, end: 20130610
  4. COPEGUS [Suspect]
     Active Substance: RIBAVIRIN
     Dosage: 200 MG, QD
     Route: 048
     Dates: start: 20130830
  5. FLUOXETINE [Concomitant]
     Active Substance: FLUOXETINE\FLUOXETINE HYDROCHLORIDE
     Indication: DEPRESSION
     Dosage: 20 MG, BID
     Route: 048
     Dates: start: 20130417
  6. COPEGUS [Suspect]
     Active Substance: RIBAVIRIN
     Dosage: 600 MG, QD
     Route: 048
     Dates: start: 20130828, end: 20130829
  7. COPEGUS [Suspect]
     Active Substance: RIBAVIRIN
     Dosage: 400 MG, QD
     Route: 048
     Dates: start: 20130617, end: 20130625
  8. PROPRANOLOL [Concomitant]
     Active Substance: PROPRANOLOL\PROPRANOLOL HYDROCHLORIDE
     Indication: ASCITES
     Dosage: 80 MG, QD
     Route: 048
     Dates: start: 20120102
  9. COPEGUS [Suspect]
     Active Substance: RIBAVIRIN
     Dosage: 800 MG, QD
     Route: 048
     Dates: start: 20130610, end: 20130617
  10. COPEGUS [Suspect]
     Active Substance: RIBAVIRIN
     Dosage: 1200 MG, QD
     Route: 048
     Dates: start: 20130827, end: 20130827
  11. TRAMADOL [Suspect]
     Active Substance: TRAMADOL
     Indication: PAIN
     Dosage: 50 MG, TID
     Route: 048
     Dates: start: 20130805, end: 20130827
  12. PEGASYS [Suspect]
     Active Substance: PEGINTERFERON ALFA-2A
     Dosage: 180 ?G, QW
     Route: 065
     Dates: start: 20130503, end: 20130823
  13. FUROSEMIDE. [Concomitant]
     Active Substance: FUROSEMIDE
     Indication: ASCITES
     Dosage: 40 MG, BID
     Route: 048
     Dates: start: 20120102
  14. COPEGUS [Suspect]
     Active Substance: RIBAVIRIN
     Dosage: 200 MG, QD
     Route: 048
     Dates: start: 20130719, end: 20130826
  15. TRAMADOL [Suspect]
     Active Substance: TRAMADOL
     Indication: TOOTH ABSCESS
  16. PEGASYS [Suspect]
     Active Substance: PEGINTERFERON ALFA-2A
     Indication: HEPATITIS C
     Dosage: 200 MG, QD
     Route: 065
     Dates: start: 20130419, end: 20130827
  17. PARACETAMOL [Concomitant]
     Active Substance: ACETAMINOPHEN
     Indication: ANALGESIC THERAPY
     Dosage: 500 MG, PRN
     Route: 048

REACTIONS (10)
  - Memory impairment [Unknown]
  - Psychotic disorder [Recovered/Resolved]
  - Malnutrition [Unknown]
  - Haemorrhoids [Unknown]
  - Hypokalaemia [Unknown]
  - Nausea [Unknown]
  - Anaemia [Recovered/Resolved]
  - Hallucination [Recovered/Resolved]
  - Thrombocytopenia [Recovered/Resolved]
  - Oedema peripheral [Unknown]

NARRATIVE: CASE EVENT DATE: 201305
